FAERS Safety Report 4399973-5 (Version None)
Quarter: 2004Q3

REPORT INFORMATION
  Report Type: 
  Country: None (occurrence: None)
  Receive Date: 20040716
  Receipt Date: 20040701
  Transmission Date: 20050211
  Serious: Yes (Hospitalization)
  Sender: FDA-Public Use
  Company Number: 2004220338BE

PATIENT
  Age: 86 Year
  Sex: Female
  Weight: 74 kg

DRUGS (5)
  1. BEXTRA [Suspect]
     Indication: OSTEOARTHRITIS
     Dosage: 20 MG, QD, ORAL
     Route: 048
     Dates: start: 20040606, end: 20040606
  2. BEXTRA [Suspect]
     Indication: OSTEOARTHRITIS
     Dosage: 20 MG, QD, ORAL
     Route: 048
     Dates: start: 20040520
  3. LOSEC [Concomitant]
  4. LEVOTHYROXINE SODIUM [Concomitant]
  5. DYTA-URESE (EPITIZIDE) [Concomitant]

REACTIONS (2)
  - ABDOMINAL PAIN UPPER [None]
  - LIVER ABSCESS [None]
